FAERS Safety Report 7946830-0 (Version None)
Quarter: 2011Q4

REPORT INFORMATION
  Report Type: 
  Country: None (occurrence: None)
  Receive Date: 20111125
  Receipt Date: 20111114
  Transmission Date: 20120403
  Serious: Yes (Other)
  Sender: FDA-Public Use
  Company Number: 2011SP053882

PATIENT

DRUGS (2)
  1. GLIADEL [Suspect]
     Indication: GLIOBLASTOMA
  2. TEMOZOLOMIDE [Suspect]
     Indication: GLIOBLASTOMA
     Dosage: 75 MG/M2

REACTIONS (1)
  - RENAL IMPAIRMENT [None]
